FAERS Safety Report 14614803 (Version 6)
Quarter: 2018Q3

REPORT INFORMATION
  Report Type: Spontaneous
  Country: FR (occurrence: FR)
  Receive Date: 20180308
  Receipt Date: 20180905
  Transmission Date: 20181010
  Serious: Yes (Other)
  Sender: FDA-Public Use
  Company Number: FR-BRISTOL-MYERS SQUIBB COMPANY-BMS-2018-020112

PATIENT
  Age: 74 Year
  Sex: Male
  Weight: 98 kg

DRUGS (7)
  1. AMIODARONE SANDOZ [Suspect]
     Active Substance: AMIODARONE
     Indication: ARRHYTHMIA
     Dosage: 1 DF, QD
     Route: 065
     Dates: start: 20170911, end: 20171209
  2. ELIQUIS [Suspect]
     Active Substance: APIXABAN
     Indication: ANTICOAGULANT THERAPY
     Dosage: 1 DF, BID
     Route: 065
  3. CORTISONE [Concomitant]
     Active Substance: CORTISONE\HYDROCORTISONE
     Indication: PAIN
     Dosage: 30 MG, UNK
     Route: 065
  4. COLCHICINE. [Concomitant]
     Active Substance: COLCHICINE
     Indication: INFLAMMATION
     Dosage: UNK
     Route: 065
  5. BISOPROLOL SANDOZ [Suspect]
     Active Substance: BISOPROLOL
     Indication: PRODUCT USED FOR UNKNOWN INDICATION
     Dosage: 2.5 MG, QD (MORNING)
     Route: 065
  6. IBUFETUM [Concomitant]
     Active Substance: IBUPROFEN
     Indication: PRODUCT USED FOR UNKNOWN INDICATION
     Dosage: 1 DF, TID
     Route: 065
  7. COLCHICINE. [Concomitant]
     Active Substance: COLCHICINE
     Indication: OEDEMA
     Route: 065

REACTIONS (24)
  - Vomiting [Recovered/Resolved]
  - Dyspnoea [Not Recovered/Not Resolved]
  - Anaemia [Unknown]
  - Vitamin D decreased [Unknown]
  - Dysgeusia [Recovered/Resolved]
  - Nausea [Recovered/Resolved]
  - Fatigue [Recovered/Resolved]
  - Temperature intolerance [Recovered/Resolved]
  - Oedema peripheral [Recovered/Resolved]
  - Blindness [Recovered/Resolved]
  - Hyperhidrosis [Unknown]
  - Nervousness [Recovered/Resolved]
  - C-reactive protein increased [Unknown]
  - Pain [Recovered/Resolved]
  - Constipation [Recovered/Resolved]
  - Muscular weakness [Recovered/Resolved]
  - Urinary tract disorder [Recovered/Resolved]
  - Gait inability [Recovered/Resolved]
  - Nerve injury [Recovered/Resolved]
  - Paralysis [Not Recovered/Not Resolved]
  - Vertigo [Not Recovered/Not Resolved]
  - Weight decreased [Recovered/Resolved]
  - Tremor [Not Recovered/Not Resolved]
  - Blood creatinine increased [Recovered/Resolved]

NARRATIVE: CASE EVENT DATE: 20170911
